FAERS Safety Report 4713235-5 (Version None)
Quarter: 2005Q3

REPORT INFORMATION
  Report Type: 
  Country: None (occurrence: None)
  Receive Date: 20050713
  Receipt Date: 20050704
  Transmission Date: 20060218
  Serious: Yes (Other)
  Sender: FDA-Public Use
  Company Number: PHNR2005AU01087

PATIENT
  Age: 37 Year
  Sex: Female

DRUGS (4)
  1. ZYPREXA [Suspect]
     Indication: SCHIZOPHRENIA
     Dosage: 22.5 MG, QD
  2. VALIUM [Suspect]
     Indication: CONVULSION
     Dosage: UNK, PRN
  3. DIABEX [Suspect]
     Indication: DIABETES MELLITUS
     Dosage: 1 G, QD
     Route: 048
     Dates: start: 20050515
  4. TEGRETOL [Suspect]
     Indication: CONVULSION
     Dosage: 800 MG, QD
     Route: 048

REACTIONS (2)
  - FAT NECROSIS [None]
  - NECROBIOSIS LIPOIDICA DIABETICORUM [None]
